FAERS Safety Report 4302060-5 (Version None)
Quarter: 2004Q1

REPORT INFORMATION
  Report Type: 
  Country: None (occurrence: None)
  Receive Date: 20040126
  Receipt Date: 20030825
  Transmission Date: 20041129
  Serious: No
  Sender: FDA-Public Use
  Company Number: US_030897070

PATIENT
  Age: 19 Year
  Sex: Male

DRUGS (1)
  1. STRATTERA [Suspect]
     Indication: DISTURBANCE IN ATTENTION
     Dosage: 100 MG/1 IN THE MORNING

REACTIONS (3)
  - DISTURBANCE IN ATTENTION [None]
  - NAUSEA [None]
  - SOMNOLENCE [None]
